FAERS Safety Report 9344034 (Version 2)
Quarter: 2013Q2

REPORT INFORMATION
  Report Type: Spontaneous
  Country: US (occurrence: US)
  Receive Date: 20130612
  Receipt Date: 20130621
  Transmission Date: 20140414
  Serious: Yes (Other)
  Sender: FDA-Public Use
  Company Number: US-PFIZER INC-2013174376

PATIENT
  Age: 75 Year
  Sex: Female
  Weight: 52.15 kg

DRUGS (9)
  1. LYRICA [Suspect]
     Indication: FIBROMYALGIA
     Dosage: 300MG DAILY
     Dates: start: 2011, end: 2012
  2. LYRICA [Suspect]
     Indication: KYPHOSIS
     Dosage: UNK
     Dates: start: 2013
  3. LYRICA [Suspect]
     Indication: DYSPEPSIA
  4. GABAPENTIN [Suspect]
     Dosage: 800 MG, 3X/DAY
  5. FLEXERIL [Suspect]
     Indication: INSOMNIA
     Dosage: UNK
  6. NORCO [Suspect]
     Dosage: UNK
  7. VALIUM [Concomitant]
     Indication: FEELING OF RELAXATION
     Dosage: UNK
  8. FUROSEMIDE [Concomitant]
     Indication: CARDIAC DISORDER
     Dosage: 20MG DAILY
  9. POTASSIUM [Concomitant]
     Indication: CARDIAC DISORDER
     Dosage: 20 MG, 2X/DAY

REACTIONS (10)
  - Off label use [Unknown]
  - Drug dependence [Unknown]
  - Bedridden [Unknown]
  - Impaired work ability [Unknown]
  - Back pain [Unknown]
  - Malaise [Unknown]
  - Abnormal behaviour [Unknown]
  - Crying [Unknown]
  - Insomnia [Unknown]
  - Drug ineffective [Unknown]
